FAERS Safety Report 12609561 (Version 1)
Quarter: 2016Q3

REPORT INFORMATION
  Report Type: Spontaneous
  Country: US (occurrence: US)
  Receive Date: 20160801
  Receipt Date: 20160801
  Transmission Date: 20161109
  Serious: No
  Sender: FDA-Public Use
  Company Number: US-TEVA-627064USA

PATIENT
  Sex: Male

DRUGS (1)
  1. BACLOFEN. [Suspect]
     Active Substance: BACLOFEN
     Indication: NYSTAGMUS
     Dosage: 60 MILLIGRAM DAILY;
     Route: 065

REACTIONS (2)
  - Withdrawal syndrome [Unknown]
  - Off label use [Unknown]
